FAERS Safety Report 6532713-X (Version None)
Quarter: 2010Q1

REPORT INFORMATION
  Report Type: 
  Country: None (occurrence: None)
  Receive Date: 20100111
  Receipt Date: 20091225
  Transmission Date: 20100710
  Serious: Yes (Death, Hospitalization)
  Sender: FDA-Public Use
  Company Number: US-BAYER-201010653GPV

PATIENT
  Age: 57 Year
  Sex: Male

DRUGS (4)
  1. SOTALOL HCL [Suspect]
     Indication: COMPLETED SUICIDE
  2. SIMVASTATIN [Suspect]
     Indication: COMPLETED SUICIDE
  3. CARBON MONOXIDE [Suspect]
     Indication: COMPLETED SUICIDE
  4. ANGIOTENSIN-CONVERTING ENZYME INHIBITOR [Suspect]
     Indication: COMPLETED SUICIDE
     Route: 048

REACTIONS (5)
  - CARBON MONOXIDE POISONING [None]
  - CARDIAC ARREST [None]
  - COMPLETED SUICIDE [None]
  - DRUG TOXICITY [None]
  - RESPIRATORY ARREST [None]
